FAERS Safety Report 9691709 (Version 1)
Quarter: 2013Q4

REPORT INFORMATION
  Report Type: Spontaneous
  Country: US (occurrence: US)
  Receive Date: 20131115
  Receipt Date: 20131115
  Transmission Date: 20140711
  Serious: No
  Sender: FDA-Public Use
  Company Number: US-009507513-1311USA006590

PATIENT
  Sex: Female

DRUGS (2)
  1. CLARITIN-D-12 [Suspect]
     Indication: ASTHMA
     Dosage: 5 MG, ONCE
     Route: 048
  2. CLARITIN-D-12 [Suspect]
     Dosage: 5 MG, BID
     Route: 048

REACTIONS (3)
  - Inappropriate schedule of drug administration [Unknown]
  - Off label use [Unknown]
  - Drug ineffective for unapproved indication [Unknown]
